FAERS Safety Report 16029757 (Version 2)
Quarter: 2019Q1

REPORT INFORMATION
  Report Type: Spontaneous
  Country: US (occurrence: US)
  Receive Date: 20190304
  Receipt Date: 20190312
  Transmission Date: 20190418
  Serious: Yes (Hospitalization)
  Sender: FDA-Public Use
  Company Number: US-JNJFOC-20190231204

PATIENT
  Age: 75 Year
  Sex: Female
  Weight: 75.75 kg

DRUGS (2)
  1. ELMIRON [Suspect]
     Active Substance: PENTOSAN POLYSULFATE SODIUM
     Indication: BLADDER PAIN
     Route: 048
     Dates: start: 201806, end: 201812
  2. ELMIRON [Suspect]
     Active Substance: PENTOSAN POLYSULFATE SODIUM
     Indication: BLADDER PAIN
     Route: 048
     Dates: start: 20190219

REACTIONS (4)
  - Therapeutic response decreased [Unknown]
  - Gastric infection [Not Recovered/Not Resolved]
  - Hip fracture [Recovered/Resolved]
  - Bladder pain [Not Recovered/Not Resolved]

NARRATIVE: CASE EVENT DATE: 201812
